FAERS Safety Report 5031761-9 (Version None)
Quarter: 2006Q2

REPORT INFORMATION
  Report Type: 
  Country: None (occurrence: None)
  Receive Date: 20060619
  Receipt Date: 20060602
  Transmission Date: 20061013
  Serious: Yes (Other)
  Sender: FDA-Public Use
  Company Number: 06-000484

PATIENT
  Age: 70 Year
  Sex: Female

DRUGS (1)
  1. DOVONEX [Suspect]
     Indication: PSORIASIS
     Dosage: 2.00 DF, QD, TOPICAL
     Route: 061
     Dates: start: 19921010, end: 19921013

REACTIONS (4)
  - ERYTHEMA [None]
  - LEUKOCYTOCLASTIC VASCULITIS [None]
  - RASH PAPULAR [None]
  - SKIN LESION [None]
